FAERS Safety Report 5839499-2 (Version None)
Quarter: 2008Q3

REPORT INFORMATION
  Report Type: 
  Country: None (occurrence: None)
  Receive Date: 20080807
  Receipt Date: 20080725
  Transmission Date: 20090109
  Serious: Yes (Life-Threatening, Hospitalization)
  Sender: FDA-Public Use
  Company Number: A-JP2006-13277

PATIENT
  Age: 23 Year
  Sex: Male
  Weight: 55 kg

DRUGS (12)
  1. TRACLEER(BOSENTAN 62.5 MG) TABLET [Suspect]
     Indication: PULMONARY ARTERIAL HYPERTENSION
     Dosage: 31.25 MG, QD, ORAL, 46.875 MG, BID, ORAL, 62.5 MG, BID, ORAL
     Route: 048
     Dates: start: 20060606, end: 20060608
  2. TRACLEER(BOSENTAN 62.5 MG) TABLET [Suspect]
     Indication: PULMONARY ARTERIAL HYPERTENSION
     Dosage: 31.25 MG, QD, ORAL, 46.875 MG, BID, ORAL, 62.5 MG, BID, ORAL
     Route: 048
     Dates: start: 20060609, end: 20060611
  3. TRACLEER(BOSENTAN 62.5 MG) TABLET [Suspect]
     Indication: PULMONARY ARTERIAL HYPERTENSION
     Dosage: 31.25 MG, QD, ORAL, 46.875 MG, BID, ORAL, 62.5 MG, BID, ORAL
     Route: 048
     Dates: start: 20060612, end: 20060612
  4. TRACLEER(BOSENTAN 62.5 MG) TABLET [Suspect]
     Indication: PULMONARY ARTERIAL HYPERTENSION
     Dosage: 31.25 MG, QD, ORAL, 46.875 MG, BID, ORAL, 62.5 MG, BID, ORAL
     Route: 048
     Dates: start: 20060613
  5. EPOPROSTENOL SODIUM [Suspect]
  6. TRICHLORMETHIAZIDE [Concomitant]
  7. OXYGEN (OXYGEN) [Concomitant]
  8. TRIAZOLAM [Concomitant]
  9. POTASSIUM CHLORIDE [Concomitant]
  10. ASPARTATE POTASSIUM (ASPARTATE POTASSIUM) [Concomitant]
  11. SPIRONOLACTONE [Concomitant]
  12. BIFIDOBACTERIUM BIFIDUM (BIFIDOBACTERIUM BIFIDUM) [Concomitant]

REACTIONS (9)
  - CONDITION AGGRAVATED [None]
  - DRUG INTERACTION [None]
  - HAEMOPTYSIS [None]
  - HEADACHE [None]
  - HOT FLUSH [None]
  - PLATELET COUNT DECREASED [None]
  - PNEUMONIA [None]
  - PULMONARY HAEMORRHAGE [None]
  - RIGHT VENTRICULAR FAILURE [None]
